FAERS Safety Report 26133868 (Version 1)
Quarter: 2025Q4

REPORT INFORMATION
  Report Type: Report from Study
  Country: JP (occurrence: JP)
  Receive Date: 20251209
  Receipt Date: 20251209
  Transmission Date: 20260118
  Serious: Yes (Hospitalization, Other)
  Sender: ABBVIE
  Company Number: JP-TAKEDA-2025TJP012381

PATIENT
  Age: 80 Year
  Sex: Male

DRUGS (11)
  1. LEUPROLIDE ACETATE [Suspect]
     Active Substance: LEUPROLIDE ACETATE
     Indication: Bulbospinal muscular atrophy congenital
     Dosage: 11.25 MILLIGRAM, Q3MONTHS
     Route: 058
     Dates: start: 20250513
  2. LEUPROLIDE ACETATE [Suspect]
     Active Substance: LEUPROLIDE ACETATE
     Dosage: 11.25 MILLIGRAM, Q3MONTHS
     Route: 058
     Dates: start: 20171031, end: 20220927
  3. LEUPROLIDE ACETATE [Suspect]
     Active Substance: LEUPROLIDE ACETATE
     Dosage: 11.25 MILLIGRAM, Q3MONTHS
     Route: 058
     Dates: start: 20230314, end: 20240820
  4. CANDESARTAN CILEXETIL [Concomitant]
     Active Substance: CANDESARTAN CILEXETIL
     Indication: Product used for unknown indication
     Dosage: 4 MILLIGRAM
     Route: 065
  5. CALONAL [Concomitant]
     Active Substance: ACETAMINOPHEN
     Indication: Compression fracture
     Dosage: 1200 MILLIGRAM
     Route: 065
     Dates: start: 20241122, end: 20250129
  6. INDOMETHACIN [Concomitant]
     Active Substance: INDOMETHACIN
     Indication: Compression fracture
     Dosage: 1 DOSAGE FORM
     Route: 065
     Dates: start: 20241225
  7. CANDESARTAN CILEXETIL\HYDROCHLOROTHIAZIDE [Concomitant]
     Active Substance: CANDESARTAN CILEXETIL\HYDROCHLOROTHIAZIDE
     Indication: Product used for unknown indication
     Dosage: 1 DOSAGE FORM
     Route: 065
  8. LOXOPROFEN SODIUM [Concomitant]
     Active Substance: LOXOPROFEN SODIUM
     Indication: Spinal osteoarthritis
     Dosage: 100 MILLIGRAM
     Route: 065
     Dates: start: 20221110, end: 20241224
  9. AMLODIPINE [Concomitant]
     Active Substance: AMLODIPINE BESYLATE
     Indication: Product used for unknown indication
     Dosage: 5 MILLIGRAM
     Route: 065
  10. NEXIUM [Concomitant]
     Active Substance: ESOMEPRAZOLE MAGNESIUM
     Indication: Product used for unknown indication
     Dosage: 10 MILLIGRAM
     Route: 065
     Dates: start: 20250312
  11. RABEPRAZOLE SODIUM [Concomitant]
     Active Substance: RABEPRAZOLE SODIUM
     Indication: Product used for unknown indication
     Dosage: 10 MILLIGRAM
     Route: 065
     Dates: end: 20250311

REACTIONS (3)
  - Compression fracture [Recovering/Resolving]
  - Urinary tract infection [Recovered/Resolved]
  - Spinal osteoarthritis [Recovering/Resolving]

NARRATIVE: CASE EVENT DATE: 20221110
